FAERS Safety Report 10524928 (Version 1)
Quarter: 2014Q4

REPORT INFORMATION
  Report Type: Spontaneous
  Country: US (occurrence: None)
  Receive Date: 20141015
  Receipt Date: 20141015
  Transmission Date: 20150528
  Serious: No
  Sender: FDA-Public Use
  Company Number: None

PATIENT
  Age: 37 Year
  Sex: Female
  Weight: 65.77 kg

DRUGS (2)
  1. ASTHMANEFRIN [Suspect]
     Active Substance: RACEPINEPHRINE HYDROCHLORIDE
     Indication: INSOMNIA
  2. ASTHMANEFRIN [Suspect]
     Active Substance: RACEPINEPHRINE HYDROCHLORIDE
     Indication: WHEEZING

REACTIONS (6)
  - Wheezing [None]
  - Disease recurrence [None]
  - Increased viscosity of bronchial secretion [None]
  - Sputum discoloured [None]
  - Therapeutic response decreased [None]
  - Cough [None]

NARRATIVE: CASE EVENT DATE: 20141011
